FAERS Safety Report 20881875 (Version 7)
Quarter: 2024Q3

REPORT INFORMATION
  Report Type: Report from Study
  Country: US (occurrence: US)
  Receive Date: 20220527
  Receipt Date: 20240925
  Transmission Date: 20241017
  Serious: No
  Sender: GLAXOSMITHKLINE
  Company Number: US-GLAXOSMITHKLINE-US2022AMR084042

PATIENT
  Age: 50 Year
  Sex: Female

DRUGS (4)
  1. NIRAPARIB [Suspect]
     Active Substance: NIRAPARIB
     Indication: Ovarian cancer
     Dosage: 200 MG, QD
     Dates: start: 20220520, end: 20220610
  2. NIRAPARIB [Suspect]
     Active Substance: NIRAPARIB
     Dosage: 100 MG, QD
  3. NAPROXEN [Concomitant]
     Active Substance: NAPROXEN
     Indication: Neuropathy peripheral
     Dosage: UNK
  4. PAXIL [Concomitant]
     Active Substance: PAROXETINE HYDROCHLORIDE
     Indication: Neuropathy peripheral
     Dosage: UNK

REACTIONS (34)
  - Abdominal discomfort [Not Recovered/Not Resolved]
  - Defaecation urgency [Not Recovered/Not Resolved]
  - Abdominal pain [Not Recovered/Not Resolved]
  - Memory impairment [Not Recovered/Not Resolved]
  - Nausea [Not Recovered/Not Resolved]
  - Hunger [Not Recovered/Not Resolved]
  - Weight increased [Not Recovered/Not Resolved]
  - Tumour marker decreased [Not Recovered/Not Resolved]
  - Platelet count decreased [Not Recovered/Not Resolved]
  - Decreased activity [Unknown]
  - Headache [Not Recovered/Not Resolved]
  - Heart rate abnormal [Unknown]
  - Sinusitis [Recovered/Resolved]
  - Visual impairment [Not Recovered/Not Resolved]
  - Brain fog [Not Recovered/Not Resolved]
  - Insomnia [Not Recovered/Not Resolved]
  - Constipation [Recovering/Resolving]
  - Dyspepsia [Unknown]
  - Fatigue [Unknown]
  - Ear pain [Unknown]
  - Productive cough [Unknown]
  - Condition aggravated [Not Recovered/Not Resolved]
  - Ear infection [Recovered/Resolved]
  - Throat irritation [Unknown]
  - Hypersensitivity [Unknown]
  - Skin discolouration [Unknown]
  - Blood cholesterol increased [Unknown]
  - Abdominal distension [Not Recovered/Not Resolved]
  - Arthralgia [Not Recovered/Not Resolved]
  - Back pain [Not Recovered/Not Resolved]
  - Hypersomnia [Not Recovered/Not Resolved]
  - Carbohydrate antigen 125 increased [Not Recovered/Not Resolved]
  - Abdominal mass [Not Recovered/Not Resolved]
  - Pelvic mass [Not Recovered/Not Resolved]

NARRATIVE: CASE EVENT DATE: 20220501
